FAERS Safety Report 18609753 (Version 11)
Quarter: 2022Q1

REPORT INFORMATION
  Report Type: Other
  Country: GB (occurrence: GB)
  Receive Date: 20201214
  Receipt Date: 20220120
  Transmission Date: 20220424
  Serious: Yes (Death, Hospitalization)
  Sender: FDA-Public Use
  Company Number: GB-ROCHE-2729198

PATIENT
  Age: 39 Year
  Sex: Male

DRUGS (21)
  1. CLONAZEPAM [Suspect]
     Active Substance: CLONAZEPAM
     Indication: Status epilepticus
     Route: 065
  2. CLONAZEPAM [Suspect]
     Active Substance: CLONAZEPAM
     Route: 065
  3. PHENOBARBITAL [Suspect]
     Active Substance: PHENOBARBITAL
     Indication: Status epilepticus
     Route: 065
  4. THIOPENTAL SODIUM [Suspect]
     Active Substance: THIOPENTAL SODIUM
     Indication: Status epilepticus
     Dosage: UP TO 4,80 MG/KG/H (4.8 MG/KG,1 HR)
     Route: 042
     Dates: start: 20161114, end: 20170109
  5. THIOPENTAL SODIUM [Suspect]
     Active Substance: THIOPENTAL SODIUM
     Dosage: UNK
     Route: 042
  6. VALPROATE SODIUM [Suspect]
     Active Substance: VALPROATE SODIUM
     Indication: Status epilepticus
     Route: 065
  7. VALPROATE SODIUM [Suspect]
     Active Substance: VALPROATE SODIUM
     Route: 065
  8. MIDAZOLAM [Suspect]
     Active Substance: MIDAZOLAM
     Indication: Status epilepticus
     Dosage: 20 MG, QH (20 MG/HR), ALL SEDATION STOPPED 28/01 (20 MG,1 HR)
     Route: 042
     Dates: end: 20170128
  9. FENTANYL [Suspect]
     Active Substance: FENTANYL
     Indication: Status epilepticus
     Dosage: 100 UG, QH, ALL SEDATION STOPPED 28/01 (100 MICROGRAM PER 100 GRAM,1 HR)
     Route: 042
     Dates: end: 20170128
  10. FENTANYL [Suspect]
     Active Substance: FENTANYL
     Route: 042
  11. LEVETIRACETAM [Suspect]
     Active Substance: LEVETIRACETAM
     Indication: Status epilepticus
     Route: 065
  12. PREDNISOLONE [Suspect]
     Active Substance: PREDNISOLONE
     Indication: Status epilepticus
     Dosage: HIGH DOSE PREDNISOLONE
     Route: 065
  13. PROPOFOL [Suspect]
     Active Substance: PROPOFOL
     Indication: Status epilepticus
     Dosage: 1 MG/KG, QH, ALL SEDATION STOPPED 28/01 (1 MG/KG,1 HR)
     Route: 042
     Dates: end: 20170128
  14. PROPOFOL [Suspect]
     Active Substance: PROPOFOL
     Dosage: ALL SEDATION STOPPED 28/01
     Route: 042
  15. PROPOFOL [Suspect]
     Active Substance: PROPOFOL
     Route: 065
  16. PHENYTOIN [Suspect]
     Active Substance: PHENYTOIN
     Indication: Status epilepticus
     Route: 065
  17. DEPAKENE [Suspect]
     Active Substance: VALPROIC ACID
     Indication: Status epilepticus
     Route: 065
  18. TOPIRAMATE [Suspect]
     Active Substance: TOPIRAMATE
     Indication: Status epilepticus
     Route: 065
  19. TOPIRAMATE [Suspect]
     Active Substance: TOPIRAMATE
     Route: 048
  20. THIOPENTAL SODIUM [Suspect]
     Active Substance: THIOPENTAL SODIUM
     Indication: Status epilepticus
     Dosage: UP TO 4,80 MG/KG/H
     Route: 042
     Dates: start: 20161114, end: 20170109
  21. THIOPENTAL SODIUM [Suspect]
     Active Substance: THIOPENTAL SODIUM
     Route: 042

REACTIONS (15)
  - Intensive care unit acquired weakness [Fatal]
  - Abdominal wall haematoma [Fatal]
  - Acute kidney injury [Fatal]
  - Colitis ischaemic [Fatal]
  - Autonomic nervous system imbalance [Fatal]
  - Hepatitis fulminant [Fatal]
  - Malabsorption [Fatal]
  - Pseudomembranous colitis [Fatal]
  - Deep vein thrombosis [Fatal]
  - Multiple organ dysfunction syndrome [Fatal]
  - Coagulopathy [Fatal]
  - Sepsis [Fatal]
  - Off label use [Fatal]
  - Infection [Fatal]
  - Metabolic acidosis [Fatal]
